FAERS Safety Report 7953501-3 (Version None)
Quarter: 2011Q4

REPORT INFORMATION
  Report Type: 
  Country: None (occurrence: None)
  Receive Date: 20111202
  Receipt Date: 20111128
  Transmission Date: 20120403
  Serious: Yes (Other)
  Sender: FDA-Public Use
  Company Number: US-PFIZER INC-2011244190

PATIENT
  Age: 87 Year
  Sex: Female

DRUGS (6)
  1. PRISTIQ [Suspect]
     Indication: ASTHENIA
     Dosage: 150 MG, UNK
  2. PRISTIQ [Suspect]
     Dosage: 100 MG, UNK
  3. INSULIN [Concomitant]
     Indication: DIABETES MELLITUS
     Dosage: UNK, 4X/DAY
  4. PLAVIX [Concomitant]
     Dosage: UNK
  5. DIOVAN [Concomitant]
     Dosage: UNK
  6. AMLODIPINE [Concomitant]
     Dosage: UNK

REACTIONS (7)
  - INSOMNIA [None]
  - HYPERHIDROSIS [None]
  - EATING DISORDER [None]
  - HALLUCINATION, AUDITORY [None]
  - FATIGUE [None]
  - SOMNOLENCE [None]
  - VOMITING [None]
